FAERS Safety Report 9167526 (Version 3)
Quarter: 2013Q2

REPORT INFORMATION
  Report Type: Spontaneous
  Country: US (occurrence: None)
  Receive Date: 20130301
  Receipt Date: 20130501
  Transmission Date: 20140414
  Serious: Yes (Life-Threatening, Hospitalization, Other)
  Sender: FDA-Public Use
  Company Number: AUR-APL-2013-01866

PATIENT
  Sex: Male

DRUGS (3)
  1. LISINOPRIL + HYDROCHLOROTHIAZIDE [Suspect]
     Indication: HYPERTENSION
     Route: 048
     Dates: start: 2008
  2. AXITINIB [Suspect]
     Indication: RENAL CELL CARCINOMA
     Dosage: 10 MG (5 MG, 2 IN 1 D)
     Route: 048
     Dates: start: 20120809, end: 20120822
  3. MORPHINE SULFATE (MORPHINE SULFATE) INJECTION [Suspect]
     Indication: PRODUCT USED FOR UNKNOWN INDICATION
     Dates: start: 20121015

REACTIONS (8)
  - Stomatitis [None]
  - Condition aggravated [None]
  - Dysphagia [None]
  - Hypophagia [None]
  - Hypotension [None]
  - Renal failure acute [None]
  - Dehydration [None]
  - Postoperative ileus [None]
